FAERS Safety Report 11875557 (Version 1)
Quarter: 2015Q4

REPORT INFORMATION
  Report Type: Spontaneous
  Country: DE (occurrence: DE)
  Receive Date: 20151229
  Receipt Date: 20151229
  Transmission Date: 20160305
  Serious: Yes (Hospitalization)
  Sender: FDA-Public Use
  Company Number: DE-PFIZER INC-2015460868

PATIENT
  Age: 68 Year
  Sex: Male

DRUGS (7)
  1. PANTOZOL [Concomitant]
     Active Substance: PANTOPRAZOLE SODIUM
     Dosage: 40 MG, 1X/DAY
     Route: 048
     Dates: start: 2010
  2. NOVAMIN /06276704/ [Concomitant]
     Active Substance: METAMIZOLE SODIUM
     Indication: PAIN
     Dosage: 500 MG, 3X A DAY AS NEEDED
     Route: 048
     Dates: start: 2005
  3. DUORESP [Concomitant]
     Dosage: 1 DF, 2X/DAY
     Route: 055
     Dates: start: 201211
  4. SULFASALAZINE. [Suspect]
     Active Substance: SULFASALAZINE
     Dosage: 500 MG, 2X/DAY
     Route: 048
     Dates: start: 20151019
  5. SULFASALAZINE. [Suspect]
     Active Substance: SULFASALAZINE
     Indication: PSORIATIC ARTHROPATHY
     Dosage: 500 MG, 1X/DAY
     Route: 048
     Dates: start: 20151013, end: 20151018
  6. RAMIPRIL COMP [Concomitant]
     Active Substance: HYDROCHLOROTHIAZIDE\RAMIPRIL
     Indication: HYPERTENSION
     Dosage: 1 DF, 1X/DAY (5/25)
     Route: 048
     Dates: start: 2010
  7. SULFASALAZINE. [Suspect]
     Active Substance: SULFASALAZINE
     Dosage: 1000 MG, 2X/DAY
     Route: 048
     Dates: start: 20151102

REACTIONS (1)
  - Granulomatous liver disease [Recovering/Resolving]

NARRATIVE: CASE EVENT DATE: 20151110
